FAERS Safety Report 9267979 (Version 1)
Quarter: 2013Q2

REPORT INFORMATION
  Report Type: Spontaneous
  Country: US (occurrence: US)
  Receive Date: 20130502
  Receipt Date: 20130502
  Transmission Date: 20140414
  Serious: No
  Sender: FDA-Public Use
  Company Number: US-ALEXION-A201201438

PATIENT
  Age: 59 Year
  Sex: Female
  Weight: 73.02 kg

DRUGS (16)
  1. SOLIRIS 300MG [Suspect]
     Indication: PAROXYSMAL NOCTURNAL HAEMOGLOBINURIA
     Dosage: 900 MG, Q2W
     Route: 042
     Dates: start: 20120708
  2. SOLIRIS 300MG [Suspect]
     Dosage: 600 MG, QW
     Route: 042
     Dates: start: 20110610, end: 20110701
  3. BENADRYL [Concomitant]
     Dosage: 25 MG, QW
     Route: 042
     Dates: start: 20110617
  4. ZOFRAN [Concomitant]
     Dosage: 4 MG, SINGLE
     Route: 042
     Dates: start: 20120810, end: 20120810
  5. ACIPHEX [Concomitant]
     Dosage: 20 MG, QD
     Route: 048
     Dates: start: 20110425
  6. AMBIEN [Concomitant]
     Dosage: 10 MG, PRN QHS
     Route: 048
     Dates: start: 20110512
  7. AMLODIPINE [Concomitant]
     Dosage: 10 MG, QD
     Route: 048
     Dates: start: 20110425
  8. COMPAZINE [Concomitant]
     Dosage: 10 MG, PRN
     Route: 048
     Dates: start: 20120224
  9. ENGENTAMICIN [Concomitant]
     Dosage: 3 MG, QD PRN
     Dates: start: 20110425
  10. EXALGO ER [Concomitant]
     Dosage: 8 MG, QD
     Route: 048
     Dates: start: 20110606
  11. FIORICET [Concomitant]
     Dosage: UNK UNK, PRN
     Dates: start: 20110425
  12. FLUTICASONE FUROATE [Concomitant]
     Dosage: 27.5 ?G, QD PRN
     Dates: start: 20110425
  13. HYDROMET [Concomitant]
     Dosage: 5MG-1.5 MG/5 ML, PRN
     Dates: start: 20110425
  14. HYDROXYZINE [Concomitant]
     Dosage: 25 MG, BID 1-2 TABS PRN
     Route: 048
     Dates: start: 20110425
  15. LEXAPRO [Concomitant]
     Dosage: 20 MG, QD
     Route: 048
     Dates: start: 20110425
  16. POTASSIUM CHLORIDE [Concomitant]
     Dosage: 20 MEQ, TID
     Route: 048
     Dates: start: 20110425

REACTIONS (2)
  - Gastrointestinal infection [Recovered/Resolved]
  - Haemoglobin decreased [Recovering/Resolving]
